FAERS Safety Report 5670052-X (Version None)
Quarter: 2008Q1

REPORT INFORMATION
  Report Type: 
  Country: None (occurrence: None)
  Receive Date: 20080312
  Receipt Date: 20080222
  Transmission Date: 20080703
  Serious: Yes (Hospitalization)
  Sender: FDA-Public Use
  Company Number: DSA_31502_2008

PATIENT
  Age: 59 Year
  Sex: Male

DRUGS (8)
  1. ENALAPRIL MALEATE [Suspect]
     Indication: HYPERTENSION
     Dosage: (10 MG BID ORAL)
     Route: 048
     Dates: start: 20070601, end: 20071112
  2. ACEBUTOLOL [Suspect]
     Indication: HYPERTENSION
     Dosage: (200 MG BID ORAL)
     Route: 048
     Dates: start: 20071101, end: 20071112
  3. AMLODIPINE BESYLATE [Concomitant]
  4. ASPIRIN LYSINE [Concomitant]
  5. CLOPIDOGREL BISULFATE [Concomitant]
  6. INSULIN GLARGINE [Concomitant]
  7. OMEPRAZOLE [Concomitant]
  8. PRAVASTATINE NA [Concomitant]

REACTIONS (3)
  - ANGIOEDEMA [None]
  - NEUTROPHIL COUNT INCREASED [None]
  - OEDEMA PERIPHERAL [None]
